FAERS Safety Report 14416944 (Version 1)
Quarter: 2018Q1

REPORT INFORMATION
  Report Type: Spontaneous
  Country: US (occurrence: US)
  Receive Date: 20180119
  Receipt Date: 20180119
  Transmission Date: 20180509
  Serious: No
  Sender: FDA-Public Use
  Company Number: None

PATIENT
  Age: 73 Year
  Sex: Male

DRUGS (14)
  1. LEVOTHYROXINE. [Concomitant]
     Active Substance: LEVOTHYROXINE
  2. FAMOTIDINE. [Concomitant]
     Active Substance: FAMOTIDINE
  3. TAMSULOSIN [Concomitant]
     Active Substance: TAMSULOSIN
  4. HYDROCHLOROTHIAZIDE. [Concomitant]
     Active Substance: HYDROCHLOROTHIAZIDE
  5. ENASIDENIB [Suspect]
     Active Substance: ENASIDENIB
     Indication: NEOPLASM MALIGNANT
     Route: 048
     Dates: start: 20170920, end: 20171024
  6. ASPIRIN. [Concomitant]
     Active Substance: ASPIRIN
  7. FINASTERIDE. [Concomitant]
     Active Substance: FINASTERIDE
  8. LORAZAPAM [Concomitant]
     Active Substance: LORAZEPAM
  9. ALLOPURINOL. [Concomitant]
     Active Substance: ALLOPURINOL
  10. TEMAZEPAM. [Concomitant]
     Active Substance: TEMAZEPAM
  11. CARVEDILOL. [Concomitant]
     Active Substance: CARVEDILOL
  12. ONDANSETRON [Concomitant]
     Active Substance: ONDANSETRON
  13. LOSARTAN. [Concomitant]
     Active Substance: LOSARTAN
  14. PROCHLORPERAZINE. [Concomitant]
     Active Substance: PROCHLORPERAZINE

REACTIONS (4)
  - Platelet count decreased [None]
  - Neutrophil count decreased [None]
  - White blood cell count decreased [None]
  - Therapy cessation [None]

NARRATIVE: CASE EVENT DATE: 20171024
